FAERS Safety Report 7042767-2 (Version None)
Quarter: 2010Q4

REPORT INFORMATION
  Report Type: 
  Country: None (occurrence: None)
  Receive Date: 20101013
  Receipt Date: 20100610
  Transmission Date: 20110411
  Serious: No
  Sender: FDA-Public Use
  Company Number: US-ASTRAZENECA-2010SE19544

PATIENT
  Age: 810 Month
  Sex: Female
  Weight: 83.9 kg

DRUGS (3)
  1. SYMBICORT [Suspect]
     Indication: DYSPNOEA
     Dosage: 160/4.5 UG 1 PUFF DAILY
     Route: 055
     Dates: start: 20100407
  2. LASIX [Concomitant]
     Indication: DIURETIC THERAPY
     Route: 065
  3. OTHER WATER PILL [Concomitant]
     Indication: DIURETIC THERAPY
     Route: 065

REACTIONS (2)
  - DYSPNOEA [None]
  - INCORRECT DOSE ADMINISTERED [None]
